FAERS Safety Report 5380788-6 (Version None)
Quarter: 2007Q3

REPORT INFORMATION
  Report Type: 
  Country: None (occurrence: None)
  Receive Date: 20070706
  Receipt Date: 20070627
  Transmission Date: 20080115
  Serious: Yes (Hospitalization)
  Sender: FDA-Public Use
  Company Number: B0477646A

PATIENT
  Age: 87 Year
  Sex: Male

DRUGS (3)
  1. ARIXTRA [Suspect]
     Dosage: 2.5MG PER DAY
     Route: 058
     Dates: start: 20070624, end: 20070625
  2. VOLTAREN [Suspect]
     Indication: SCOLIOSIS
     Dates: start: 20070625, end: 20070625
  3. PREVISCAN [Suspect]
     Dates: end: 20070623

REACTIONS (4)
  - BACK PAIN [None]
  - INTENTIONAL DRUG MISUSE [None]
  - PARAPLEGIA [None]
  - SPINAL HAEMATOMA [None]
